FAERS Safety Report 9646785 (Version 1)
Quarter: 2013Q4

REPORT INFORMATION
  Report Type: Spontaneous
  Country: US (occurrence: US)
  Receive Date: 20131027
  Receipt Date: 20131027
  Transmission Date: 20140711
  Serious: No
  Sender: FDA-Public Use
  Company Number: US-PURDUE-USA-2013-0102949

PATIENT
  Sex: Male

DRUGS (2)
  1. OXYCONTIN (NDA 22-272) [Suspect]
     Indication: PAIN
     Dosage: 20 MG, TID (AFTER BREAKFAST, IN THE AFTERNOON AND AT 7 TO 8PM AT NIGHT)
     Route: 048
  2. OXYCONTIN (NDA 22-272) [Suspect]
     Dosage: 40 MG, Q12H
     Route: 048

REACTIONS (4)
  - Somnolence [Unknown]
  - Drug ineffective [Unknown]
  - Drug effect decreased [Unknown]
  - Product odour abnormal [Unknown]
